FAERS Safety Report 16118895 (Version 6)
Quarter: 2019Q3

REPORT INFORMATION
  Report Type: Spontaneous
  Country: JP (occurrence: JP)
  Receive Date: 20190326
  Receipt Date: 20190709
  Transmission Date: 20191004
  Serious: Yes (Life-Threatening, Hospitalization, Other)
  Sender: FDA-Public Use
  Company Number: JP-ASTRAZENECA-2019SE44451

PATIENT
  Age: 69 Year
  Sex: Female
  Weight: 50 kg

DRUGS (9)
  1. MIYA-BM [Concomitant]
     Active Substance: CLOSTRIDIUM BUTYRICUM SPORES STRAIN M-55
     Indication: ENTEROCOLITIS
     Route: 048
  2. IRESSA [Suspect]
     Active Substance: GEFITINIB
     Indication: LUNG ADENOCARCINOMA
     Route: 048
     Dates: start: 20181125, end: 20190307
  3. CERCINE [Suspect]
     Active Substance: DIAZEPAM
     Indication: ANXIETY
     Dosage: 2.0MG UNKNOWN
     Route: 048
     Dates: start: 20190313, end: 20190317
  4. DERMOVATE [Concomitant]
     Active Substance: CLOBETASOL
     Indication: SKIN DISORDER
     Route: 062
  5. CERCINE [Suspect]
     Active Substance: DIAZEPAM
     Indication: ANXIETY
     Dosage: ON 15-MAR-20194.0DF UNKNOWN
     Route: 048
  6. ZOLPIDEM TARTRATE. [Concomitant]
     Active Substance: ZOLPIDEM TARTRATE
     Indication: INSOMNIA
     Route: 048
  7. IRESSA [Suspect]
     Active Substance: GEFITINIB
     Indication: LUNG ADENOCARCINOMA
     Dosage: 6.0DF UNKNOWN
     Route: 048
     Dates: start: 20190315, end: 20190315
  8. IRESSA [Suspect]
     Active Substance: GEFITINIB
     Indication: LUNG ADENOCARCINOMA
     Route: 048
     Dates: start: 20180630, end: 20181124
  9. AMLODIPINE [Concomitant]
     Active Substance: AMLODIPINE BESYLATE
     Indication: HYPERTENSION
     Route: 048

REACTIONS (15)
  - Depressed mood [Unknown]
  - Vomiting [Recovered/Resolved]
  - Overdose [Unknown]
  - Suicide attempt [Unknown]
  - Anxiety [Unknown]
  - Abdominal discomfort [Unknown]
  - Hepatic function abnormal [Recovering/Resolving]
  - Diarrhoea [Recovered/Resolved]
  - Rhabdomyolysis [Recovering/Resolving]
  - Amylase increased [Recovered/Resolved]
  - Rash [Unknown]
  - Off label use [Unknown]
  - Renal cyst [Unknown]
  - Pleural effusion [Unknown]
  - Haematemesis [Recovered/Resolved]

NARRATIVE: CASE EVENT DATE: 20180704
